FAERS Safety Report 5913462-5 (Version None)
Quarter: 2008Q4

REPORT INFORMATION
  Report Type: 
  Country: None (occurrence: None)
  Receive Date: 20081008
  Receipt Date: 20081008
  Transmission Date: 20090506
  Serious: Yes (Other)
  Sender: FDA-Public Use
  Company Number: None

PATIENT
  Sex: Female
  Weight: 61.6892 kg

DRUGS (1)
  1. BETAXOLOL [Suspect]
     Indication: SUPRAVENTRICULAR TACHYCARDIA
     Dosage: 1/2 TAB IN AM, 1/4 TAB IN PM PO
     Route: 048
     Dates: start: 20080925, end: 20081006

REACTIONS (2)
  - HYPOPHAGIA [None]
  - NAUSEA [None]
